FAERS Safety Report 12255205 (Version 2)
Quarter: 2017Q3

REPORT INFORMATION
  Report Type: Spontaneous
  Country: US (occurrence: US)
  Receive Date: 20160412
  Receipt Date: 20170904
  Transmission Date: 20171127
  Serious: Yes (Other)
  Sender: FDA-Public Use
  Company Number: US-ASTRAZENECA-2016SE36942

PATIENT
  Age: 81 Year
  Sex: Male

DRUGS (1)
  1. TUDORZA PRESSAIR [Suspect]
     Active Substance: ACLIDINIUM BROMIDE
     Route: 055

REACTIONS (5)
  - Drug dose omission [Unknown]
  - Dementia [Unknown]
  - Intentional product misuse [Unknown]
  - Device failure [Unknown]
  - Cardiac failure congestive [Unknown]
